FAERS Safety Report 7971267-8 (Version None)
Quarter: 2011Q4

REPORT INFORMATION
  Report Type: 
  Country: None (occurrence: None)
  Receive Date: 20111212
  Receipt Date: 20110104
  Transmission Date: 20120403
  Serious: No
  Sender: FDA-Public Use
  Company Number: US-BRISTOL-MYERS SQUIBB COMPANY-15463441

PATIENT
  Age: 51 Year
  Sex: Female

DRUGS (1)
  1. IXEMPRA KIT [Suspect]
     Indication: BREAST CANCER METASTATIC
     Dosage: STARTED WITH 40MG/M2, REDUCED TO 34 MG/M2
     Route: 042
     Dates: start: 20101207

REACTIONS (4)
  - FATIGUE [None]
  - NEUTROPENIA [None]
  - DRUG ADMINISTRATION ERROR [None]
  - MUCOSAL INFLAMMATION [None]
